FAERS Safety Report 4667618-2 (Version None)
Quarter: 2005Q2

REPORT INFORMATION
  Report Type: 
  Country: None (occurrence: None)
  Receive Date: 20050502
  Receipt Date: 20040604
  Transmission Date: 20051028
  Serious: Yes (Other)
  Sender: FDA-Public Use
  Company Number: PHEH2004US06264

PATIENT
  Age: 67 Year
  Sex: Female
  Weight: 106.6 kg

DRUGS (10)
  1. LOTREL [Suspect]
     Indication: HYPERTENSION
     Dosage: 10 MG AMLOD/20 MG BENAZ QD
     Dates: start: 20040603
  2. PLAVIX [Concomitant]
  3. PROZAC [Concomitant]
  4. LORTAB [Concomitant]
  5. XANAX [Concomitant]
  6. LIPITOR [Concomitant]
  7. DETROL [Concomitant]
  8. ATENOLOL [Concomitant]
  9. SYNTHROID [Concomitant]
  10. HYDRALAZINE [Concomitant]

REACTIONS (1)
  - BLOOD PRESSURE INCREASED [None]
